FAERS Safety Report 25978116 (Version 2)
Quarter: 2025Q4

REPORT INFORMATION
  Report Type: Spontaneous
  Country: US (occurrence: US)
  Receive Date: 20251030
  Receipt Date: 20251030
  Transmission Date: 20260117
  Serious: Yes (Other)
  Sender: IPSEN BIOPHARMACEUTICALS, INC.
  Company Number: US-IPSEN Group, Research and Development-2025-26673

PATIENT
  Sex: Female

DRUGS (1)
  1. IQIRVO [Suspect]
     Active Substance: ELAFIBRANOR
     Indication: Primary biliary cholangitis
     Route: 048
     Dates: start: 202505

REACTIONS (7)
  - Multiple organ dysfunction syndrome [Unknown]
  - Stomatitis [Unknown]
  - Oropharyngeal pain [Unknown]
  - Irritability [Unknown]
  - Dry mouth [Unknown]
  - Chromaturia [Unknown]
  - Myalgia [Unknown]
